FAERS Safety Report 8879701 (Version 2)
Quarter: 2012Q4

REPORT INFORMATION
  Report Type: 
  Country: JP (occurrence: JP)
  Receive Date: 20121101
  Receipt Date: 20121130
  Transmission Date: 20130627
  Serious: Yes (Other)
  Sender: FDA-Public Use
  Company Number: JP-009507513-1210JPN013257

PATIENT
  Age: 49 Year
  Sex: Male
  Weight: 71 kg

DRUGS (6)
  1. PEGINTRON [Suspect]
     Indication: CHRONIC HEPATITIS C
     Dosage: 1.5 Microgram per kilogram, qw
     Route: 058
     Dates: start: 20120904, end: 20121016
  2. REBETOL [Suspect]
     Indication: CHRONIC HEPATITIS C
     Dosage: 600 mg, qd
     Route: 048
     Dates: start: 20120904, end: 20120917
  3. REBETOL [Suspect]
     Dosage: 400 mg, qd
     Route: 048
     Dates: start: 20120918, end: 20121026
  4. TELAVIC [Suspect]
     Indication: CHRONIC HEPATITIS C
     Dosage: 1500 mg, qd
     Route: 048
     Dates: start: 20120904, end: 20121026
  5. URSO [Concomitant]
     Indication: CHRONIC HEPATITIS C
     Dosage: 300 mg, qd
     Route: 048
  6. GLACTIV [Concomitant]
     Indication: TYPE 1 DIABETES MELLITUS
     Dosage: 100 mg, qd
     Route: 048

REACTIONS (4)
  - Nausea [Not Recovered/Not Resolved]
  - Vomiting [Not Recovered/Not Resolved]
  - Hyperuricaemia [Not Recovered/Not Resolved]
  - Anaemia [Recovered/Resolved]
